FAERS Safety Report 5913127-X (Version None)
Quarter: 2008Q4

REPORT INFORMATION
  Report Type: 
  Country: None (occurrence: None)
  Receive Date: 20081006
  Receipt Date: 20080924
  Transmission Date: 20090506
  Serious: Yes (Hospitalization)
  Sender: FDA-Public Use
  Company Number: 2008BI014720

PATIENT
  Age: 58 Year
  Sex: Female

DRUGS (18)
  1. AVONEX [Suspect]
     Indication: MULTIPLE SCLEROSIS
     Dosage: ; IM
     Route: 030
     Dates: start: 20021106, end: 20050302
  2. AVONEX [Suspect]
     Indication: MULTIPLE SCLEROSIS
     Dosage: ; IM
     Route: 030
     Dates: start: 20050627
  3. HYDROCODONE BITARTRATE [Concomitant]
  4. SINGULAIR [Concomitant]
  5. VYTORIN [Concomitant]
  6. BENZONATATE [Concomitant]
  7. BACLOFEN [Concomitant]
  8. TRAZODONE HCL [Concomitant]
  9. LYRICA [Concomitant]
  10. MORPHINE [Concomitant]
  11. PROTONIX [Concomitant]
  12. HYDROCHLOROTHIAZIDE [Concomitant]
  13. DILTIAZEM [Concomitant]
  14. PLAVIX [Concomitant]
  15. HYDROXYZINE [Concomitant]
  16. CYMBALTA [Concomitant]
  17. FEXOFENADINE [Concomitant]
  18. ANTIBIOTICS [NOS] [Concomitant]

REACTIONS (9)
  - ARTERIAL RUPTURE [None]
  - CONSTIPATION [None]
  - CORONARY ARTERY DISEASE [None]
  - CORONARY ARTERY THROMBOSIS [None]
  - HEART RATE INCREASED [None]
  - MYOCARDIAL INFARCTION [None]
  - NAUSEA [None]
  - PAIN [None]
  - VENTRICULAR TACHYCARDIA [None]
